FAERS Safety Report 14561298 (Version 1)
Quarter: 2018Q1

REPORT INFORMATION
  Report Type: Spontaneous
  Country: US (occurrence: US)
  Receive Date: 20180222
  Receipt Date: 20180222
  Transmission Date: 20180509
  Serious: No
  Sender: FDA-Public Use
  Company Number: US-PFIZER INC-2018072892

PATIENT
  Age: 78 Year
  Sex: Female
  Weight: 59.87 kg

DRUGS (2)
  1. CELEBREX [Suspect]
     Active Substance: CELECOXIB
     Indication: OSTEOARTHRITIS
     Dosage: 200 MG, DAILY
     Route: 048
     Dates: start: 2012
  2. CELEBREX [Suspect]
     Active Substance: CELECOXIB
     Indication: PAIN

REACTIONS (1)
  - Drug effect incomplete [Not Recovered/Not Resolved]
